FAERS Safety Report 9904752 (Version 3)
Quarter: 2014Q2

REPORT INFORMATION
  Report Type: Report from Study
  Country: US (occurrence: US)
  Receive Date: 20140218
  Receipt Date: 20140423
  Transmission Date: 20141212
  Serious: Yes (Other)
  Sender: FDA-Public Use
  Company Number: US-ABBVIE-14P-163-1200254-00

PATIENT
  Sex: Female

DRUGS (7)
  1. HUMIRA [Suspect]
     Indication: RHEUMATOID ARTHRITIS
  2. HUMIRA [Suspect]
     Dates: start: 201001
  3. METHOTREXATE [Concomitant]
     Indication: RHEUMATOID ARTHRITIS
     Dosage: 1 CC WEEKLY
     Route: 050
  4. CELEBREX [Concomitant]
     Indication: RHEUMATOID ARTHRITIS
  5. ASPIRIN [Concomitant]
     Indication: PROPHYLAXIS
  6. VITAMINS NOS [Concomitant]
     Indication: PRODUCT USED FOR UNKNOWN INDICATION
  7. HYDROCHLOROTH [Concomitant]
     Indication: HYPERTENSION

REACTIONS (2)
  - Hypertension [Recovering/Resolving]
  - Rheumatoid arthritis [Recovering/Resolving]
